FAERS Safety Report 4451273-0 (Version None)
Quarter: 2004Q3

REPORT INFORMATION
  Report Type: 
  Country: None (occurrence: None)
  Receive Date: 20040915
  Receipt Date: 20040915
  Transmission Date: 20050211
  Serious: Yes (Other)
  Sender: FDA-Public Use
  Company Number: None

PATIENT
  Sex: Male
  Weight: 54.4316 kg

DRUGS (4)
  1. CHLORAPREP, CHLORHEXIDINE 2% MEDI-FLEX PRODUCTS [Suspect]
     Dosage: AS DIRECTE CUTANEOUS
     Route: 003
     Dates: start: 20040902, end: 20040910
  2. TPN [Concomitant]
  3. AMINO ACID INJ [Concomitant]
  4. M.V.I. [Concomitant]

REACTIONS (2)
  - APPLICATION SITE DERMATITIS [None]
  - APPLICATION SITE IRRITATION [None]
